FAERS Safety Report 12550166 (Version 3)
Quarter: 2016Q3

REPORT INFORMATION
  Report Type: Spontaneous
  Country: DE (occurrence: DE)
  Receive Date: 20160712
  Receipt Date: 20160906
  Transmission Date: 20161109
  Serious: Yes (Other)
  Sender: FDA-Public Use
  Company Number: DE-ELI_LILLY_AND_COMPANY-DE201607001032

PATIENT
  Age: 56 Year
  Sex: Female

DRUGS (1)
  1. GEMZAR [Suspect]
     Active Substance: GEMCITABINE HYDROCHLORIDE
     Indication: PANCREATIC CARCINOMA
     Dosage: UNK, UNKNOWN
     Route: 042

REACTIONS (2)
  - Platelet count increased [Unknown]
  - Thrombosis [Unknown]
